FAERS Safety Report 9330211 (Version 2)
Quarter: 2013Q3

REPORT INFORMATION
  Report Type: Spontaneous
  Country: US (occurrence: US)
  Receive Date: 20130604
  Receipt Date: 20130709
  Transmission Date: 20140515
  Serious: Yes (Hospitalization, Other)
  Sender: FDA-Public Use
  Company Number: US-RB-054501-13

PATIENT
  Age: 27 Year
  Sex: Female

DRUGS (2)
  1. SUBOXONE FILM [Suspect]
     Indication: PRODUCT USED FOR UNKNOWN INDICATION
     Dosage: SUBOXONE FILM; UNKNOWN EXTRA DOSAGES, MORE THAN PRESCRIBED 12 MG DAILY
     Route: 065
     Dates: start: 201304, end: 201305
  2. SUBOXONE FILM [Suspect]
     Route: 065
     Dates: start: 201305, end: 20130510

REACTIONS (4)
  - Extra dose administered [Recovered/Resolved]
  - Psychotic behaviour [Unknown]
  - Abnormal behaviour [Unknown]
  - Eating disorder [Unknown]
